FAERS Safety Report 10169694 (Version 1)
Quarter: 2014Q2

REPORT INFORMATION
  Report Type: Spontaneous
  Country: US (occurrence: US)
  Receive Date: 20140513
  Receipt Date: 20140513
  Transmission Date: 20141212
  Serious: Yes (Other)
  Sender: FDA-Public Use
  Company Number: US-PFIZER INC-2014127093

PATIENT
  Sex: Male

DRUGS (3)
  1. DILANTIN [Suspect]
     Dosage: 150 MG, 2X/DAY
  2. TEGRETOL - SLOW RELEASE [Suspect]
     Dosage: UNK
  3. BUSPIRONE HYDROCHLORIDE [Suspect]
     Dosage: UNK

REACTIONS (5)
  - Hallucination [Unknown]
  - Toxicity to various agents [Unknown]
  - Drug level increased [Unknown]
  - Drug level fluctuating [Unknown]
  - Drug ineffective [Unknown]
